FAERS Safety Report 12306410 (Version 1)
Quarter: 2016Q2

REPORT INFORMATION
  Report Type: Spontaneous
  Country: FR (occurrence: FR)
  Receive Date: 20160426
  Receipt Date: 20160426
  Transmission Date: 20160815
  Serious: Yes (Death, Life-Threatening)
  Sender: FDA-Public Use
  Company Number: FR-PFIZER INC-2016224974

PATIENT
  Age: 80 Year
  Sex: Female

DRUGS (14)
  1. CANDESARTAN [Concomitant]
     Active Substance: CANDESARTAN
  2. MACROGOL [Concomitant]
     Active Substance: POLYETHYLENE GLYCOLS
  3. WARFARINE [Concomitant]
     Active Substance: WARFARIN
  4. PYOSTACINE [Concomitant]
     Active Substance: PRISTINAMYCIN
     Indication: ERYSIPELAS
     Dosage: UNK
     Dates: start: 20160308
  5. BISOPROLOL [Concomitant]
     Active Substance: BISOPROLOL
  6. ATENOLOL. [Suspect]
     Active Substance: ATENOLOL
     Indication: ATRIAL FIBRILLATION
     Dosage: PROGRESSIVELY INCREASED UNTIL 200 MG/ DAY
     Route: 048
     Dates: start: 20160311
  7. MIRTAZAPINE. [Concomitant]
     Active Substance: MIRTAZAPINE
  8. OXAZEPAM. [Concomitant]
     Active Substance: OXAZEPAM
  9. FUROSEMIDE. [Concomitant]
     Active Substance: FUROSEMIDE
  10. LEVOTHYROX [Concomitant]
     Active Substance: LEVOTHYROXINE
  11. NOCTAMIDE [Concomitant]
     Active Substance: LORMETAZEPAM
  12. ZYVOXID [Suspect]
     Active Substance: LINEZOLID
     Indication: PHLEBITIS
     Dosage: UNK
     Route: 048
     Dates: start: 20160323
  13. ZYVOXID [Suspect]
     Active Substance: LINEZOLID
     Indication: PYREXIA
  14. PARACETAMOL [Concomitant]
     Active Substance: ACETAMINOPHEN

REACTIONS (1)
  - Hypoglycaemia [Fatal]

NARRATIVE: CASE EVENT DATE: 20160329
